FAERS Safety Report 15150485 (Version 2)
Quarter: 2020Q4

REPORT INFORMATION
  Report Type: Spontaneous
  Country: US (occurrence: US)
  Receive Date: 20180716
  Receipt Date: 20201102
  Transmission Date: 20210113
  Serious: No
  Sender: FDA-Public Use
  Company Number: US-TEVA-2018-US-923768

PATIENT
  Sex: Female

DRUGS (1)
  1. COPAXONE [Suspect]
     Active Substance: GLATIRAMER ACETATE
     Route: 065

REACTIONS (3)
  - Maternal exposure during pregnancy [Unknown]
  - Muscle spasms [Unknown]
  - Product dose omission issue [Unknown]
